FAERS Safety Report 8104427-6 (Version None)
Quarter: 2012Q1

REPORT INFORMATION
  Report Type: 
  Country: None (occurrence: None)
  Receive Date: 20120130
  Receipt Date: 20120124
  Transmission Date: 20120608
  Serious: Yes (Other)
  Sender: FDA-Public Use
  Company Number: FR-JNJFOC-20120111681

PATIENT
  Sex: Male

DRUGS (5)
  1. RISPERDAL CONSTA [Suspect]
     Indication: PSYCHOTIC DISORDER
     Route: 030
  2. NEULEPTIL [Concomitant]
     Dosage: 1-1-2
     Route: 065
  3. VALIUM [Concomitant]
     Route: 065
  4. PRAZEPAM [Concomitant]
     Route: 065
  5. TIAPRIDAL [Concomitant]
     Dosage: 20-20-40
     Route: 065

REACTIONS (3)
  - ANAEMIA [None]
  - THROMBOCYTOPENIA [None]
  - CHOLESTASIS [None]
